FAERS Safety Report 13612097 (Version 1)
Quarter: 2017Q2

REPORT INFORMATION
  Report Type: Spontaneous
  Country: CA (occurrence: CA)
  Receive Date: 20170605
  Receipt Date: 20170605
  Transmission Date: 20170830
  Serious: Yes (Disabling)
  Sender: FDA-Public Use
  Company Number: CA-TEVA-775523ACC

PATIENT
  Age: 80 Year
  Sex: Male
  Weight: 107.14 kg

DRUGS (6)
  1. METFORMIN HYDROCHLORIDE. [Suspect]
     Active Substance: METFORMIN HYDROCHLORIDE
     Indication: TYPE 2 DIABETES MELLITUS
     Dosage: 1 UNIT
     Route: 048
  2. BISOPROLOL [Concomitant]
     Active Substance: BISOPROLOL
  3. DILTIAZEM. [Concomitant]
     Active Substance: DILTIAZEM
  4. ROSUVASTATIN. [Concomitant]
     Active Substance: ROSUVASTATIN
  5. ELIQUIS FILM COATED [Concomitant]
  6. HYDROCHLOROTHIAZIDE. [Concomitant]
     Active Substance: HYDROCHLOROTHIAZIDE

REACTIONS (7)
  - Dry mouth [Recovering/Resolving]
  - Influenza like illness [Recovering/Resolving]
  - Heart rate increased [Recovering/Resolving]
  - Gastrooesophageal reflux disease [Recovering/Resolving]
  - Heart rate irregular [Recovering/Resolving]
  - Product physical issue [Recovering/Resolving]
  - Muscular weakness [Recovering/Resolving]
